FAERS Safety Report 7958303-X (Version None)
Quarter: 2011Q4

REPORT INFORMATION
  Report Type: 
  Country: None (occurrence: None)
  Receive Date: 20111205
  Receipt Date: 20111122
  Transmission Date: 20120403
  Serious: Yes (Death)
  Sender: FDA-Public Use
  Company Number: AT-ACTELION-A-CH2011-57518

PATIENT
  Sex: Female
  Weight: 50 kg

DRUGS (7)
  1. PREDNISOLONE [Concomitant]
  2. BISOPROLOL FUMARATE [Concomitant]
  3. MYCOPHENOLATE MOFETIL (CELLCEPT) [Concomitant]
  4. PANTOPRAZOLE [Concomitant]
  5. TRACLEER [Suspect]
     Indication: PULMONARY ARTERIAL HYPERTENSION
     Dosage: 125 MG, BID
     Route: 048
     Dates: start: 20080301, end: 20111101
  6. TRACLEER [Suspect]
     Dosage: 62.5 MG, BID
     Route: 048
     Dates: start: 20080201, end: 20080301
  7. AMLODIPINE [Concomitant]

REACTIONS (4)
  - RIGHT VENTRICULAR FAILURE [None]
  - WEIGHT DECREASED [None]
  - BEDRIDDEN [None]
  - GENERAL PHYSICAL HEALTH DETERIORATION [None]
